FAERS Safety Report 6720715-X (Version None)
Quarter: 2010Q2

REPORT INFORMATION
  Report Type: 
  Country: None (occurrence: None)
  Receive Date: 20100512
  Receipt Date: 20100503
  Transmission Date: 20101027
  Serious: Yes (Hospitalization, Other)
  Sender: FDA-Public Use
  Company Number: US-BIOGENIDEC-2009BI022620

PATIENT
  Age: 51 Year
  Sex: Female

DRUGS (1)
  1. TYSABRI [Suspect]
     Indication: MULTIPLE SCLEROSIS
     Route: 042
     Dates: start: 20090630

REACTIONS (5)
  - DEEP VEIN THROMBOSIS [None]
  - FALL [None]
  - HEADACHE [None]
  - THROMBOSIS [None]
  - URINARY TRACT INFECTION [None]
